FAERS Safety Report 19876611 (Version 1)
Quarter: 2021Q3

REPORT INFORMATION
  Report Type: Report from Study
  Country: CO (occurrence: CO)
  Receive Date: 20210923
  Receipt Date: 20210923
  Transmission Date: 20211014
  Serious: Yes (Hospitalization, Other)
  Sender: FDA-Public Use
  Company Number: NVSC2021CO213558

PATIENT
  Age: 46 Year
  Sex: Female
  Weight: 96 kg

DRUGS (1)
  1. MONTELUKAST [Suspect]
     Active Substance: MONTELUKAST SODIUM
     Indication: HYPERSENSITIVITY
     Dosage: 10 MG, QD (STARTED 2 YEARS AGO)
     Route: 048

REACTIONS (9)
  - Acne [Unknown]
  - Pruritus [Unknown]
  - Therapeutic product effect incomplete [Not Recovered/Not Resolved]
  - Dermatitis allergic [Not Recovered/Not Resolved]
  - Skin burning sensation [Unknown]
  - Choking [Recovering/Resolving]
  - Skin irritation [Recovering/Resolving]
  - Idiopathic urticaria [Unknown]
  - Erythema [Recovering/Resolving]

NARRATIVE: CASE EVENT DATE: 202108
